FAERS Safety Report 8837936 (Version 1)
Quarter: 2012Q4

REPORT INFORMATION
  Report Type: 
  Country: US (occurrence: US)
  Receive Date: 20121012
  Receipt Date: 20121012
  Transmission Date: 20130627
  Serious: Yes (Death, Other)
  Sender: FDA-Public Use
  Company Number: US-ROCHE-1144408

PATIENT
  Age: 69 Year
  Sex: Female

DRUGS (6)
  1. HERCEPTIN [Suspect]
     Indication: BREAST CANCER FEMALE
     Dosage: OVER 45 MINUTES
     Route: 042
     Dates: start: 20010423
  2. TAXOL [Concomitant]
     Indication: BREAST CANCER FEMALE
     Route: 042
     Dates: start: 20010423
  3. LASIX [Concomitant]
     Route: 065
  4. LIPITOR [Concomitant]
     Route: 065
  5. ASPIRIN [Concomitant]
     Route: 065
  6. VITAMIN C [Concomitant]

REACTIONS (14)
  - Death [Fatal]
  - Neurotoxicity [Unknown]
  - Ejection fraction decreased [Unknown]
  - Oedema [Unknown]
  - Chills [Unknown]
  - Fatigue [Unknown]
  - Arthralgia [Unknown]
  - Erythema [Unknown]
  - Lymphoedema [Unknown]
  - Anaemia [Unknown]
  - Skin induration [Unknown]
  - Hypoaesthesia [Unknown]
  - Paraesthesia [Unknown]
  - Epistaxis [Unknown]
